FAERS Safety Report 10954100 (Version 4)
Quarter: 2015Q4

REPORT INFORMATION
  Report Type: Report from Study
  Country: GB (occurrence: GB)
  Receive Date: 20150325
  Receipt Date: 20151006
  Transmission Date: 20160304
  Serious: Yes (Hospitalization)
  Sender: FDA-Public Use
  Company Number: GB-ROCHE-1195590

PATIENT
  Age: 41 Year
  Sex: Female
  Weight: 64.3 kg

DRUGS (18)
  1. ORAMORPH [Concomitant]
     Active Substance: MORPHINE SULFATE
     Route: 065
     Dates: start: 20121114, end: 20130613
  2. DULOXETINE. [Concomitant]
     Active Substance: DULOXETINE
     Route: 065
     Dates: start: 20130522
  3. BEVACIZUMAB [Suspect]
     Active Substance: BEVACIZUMAB
     Indication: BREAST CANCER
     Dosage: LAST DATE PRIOR TO  FIRST EPISODE OF PAIN: 15/FEB/2013?LAST DOSE PRIOR TO DISEASE PROGRESSION AND DV
     Route: 042
     Dates: start: 20110812, end: 20130829
  4. ZOPLICONE [Concomitant]
     Active Substance: ZOPICLONE
     Route: 065
     Dates: start: 20130522
  5. GEMCITABINE [Concomitant]
     Active Substance: GEMCITABINE\GEMCITABINE HYDROCHLORIDE
  6. DIAZEPAM. [Concomitant]
     Active Substance: DIAZEPAM
     Route: 065
     Dates: start: 20130522
  7. MORPHINE SULFATE. [Concomitant]
     Active Substance: MORPHINE SULFATE
     Route: 065
     Dates: start: 20130613, end: 20130922
  8. LAXIDO [Concomitant]
     Active Substance: POLYETHYLENE GLYCOL 3350\POTASSIUM CHLORIDE\SODIUM BICARBONATE\SODIUM CHLORIDE
     Dosage: 2 SACHETS
     Route: 065
     Dates: start: 20130613
  9. ORAMORPH [Concomitant]
     Active Substance: MORPHINE SULFATE
     Route: 065
     Dates: start: 20130613
  10. AMLODIPINE [Concomitant]
     Active Substance: AMLODIPINE BESYLATE
     Route: 065
     Dates: start: 20111219
  11. WARFARIN [Concomitant]
     Active Substance: WARFARIN
     Route: 065
     Dates: start: 20130905
  12. MIRTAZAPINE. [Concomitant]
     Active Substance: MIRTAZAPINE
     Route: 065
     Dates: start: 201110, end: 20130522
  13. FORCEVAL [Concomitant]
     Active Substance: FOLIC ACID\IRON\MINERALS\VITAMINS
     Dosage: 1 CAP DAILY
     Route: 065
     Dates: start: 20111214
  14. CARBOPLATIN. [Concomitant]
     Active Substance: CARBOPLATIN
  15. GAVISCON TABLETS (UNITED KINGDOM) [Concomitant]
     Route: 065
     Dates: start: 20120125
  16. DIFFLAM [Concomitant]
     Active Substance: BENZYDAMINE HYDROCHLORIDE
     Route: 065
     Dates: start: 20110820
  17. LANSOPRAZOLE. [Concomitant]
     Active Substance: LANSOPRAZOLE
     Route: 065
     Dates: start: 20120123
  18. FRAGMIN [Concomitant]
     Active Substance: DALTEPARIN SODIUM
     Route: 065
     Dates: start: 20130929

REACTIONS (3)
  - Deep vein thrombosis [Recovered/Resolved]
  - Pain [Recovered/Resolved with Sequelae]
  - Disease progression [Recovered/Resolved]

NARRATIVE: CASE EVENT DATE: 20130825
